FAERS Safety Report 20714223 (Version 1)
Quarter: 2022Q2

REPORT INFORMATION
  Report Type: Spontaneous
  Country: CH (occurrence: CH)
  Receive Date: 20220415
  Receipt Date: 20220415
  Transmission Date: 20220720
  Serious: Yes (Hospitalization)
  Sender: FDA-Public Use
  Company Number: None

PATIENT
  Age: 83 Year
  Sex: Female

DRUGS (18)
  1. AMOXICILLIN\CLAVULANATE POTASSIUM [Suspect]
     Active Substance: AMOXICILLIN\CLAVULANATE POTASSIUM
     Indication: Sepsis
     Dosage: UNIT DOSE :  1.2 GRAM, FREQUENCY TIME :4 DAY, DURATION : 3 DAYS, CO-AMOXI MEPHA PHARMA AG 1.2 G 1X/6
     Route: 042
     Dates: start: 20220215, end: 20220218
  2. CEFTRIAXONE [Suspect]
     Active Substance: CEFTRIAXONE
     Dosage: UNIT DOSE :2 GRAM, FREQUENCY TIME :1 DAY, DURATION :2 DAYS, CEFTRIAXON LABATEC-PHARMA SA 2G IV SINGL
     Route: 042
     Dates: start: 20220212, end: 20220214
  3. AMOXICILLIN [Suspect]
     Active Substance: AMOXICILLIN
     Dosage: UNIT DOSE :  1 GRAM,  FREQUENCY TIME :3 DAYS, DURATION : 16 DAYS, AMOXICILLIN SANDOZ PHARMACEUTICALS
     Route: 048
     Dates: start: 20220219, end: 20220307
  4. ASPIRIN [Concomitant]
     Active Substance: ASPIRIN
     Dosage: USUAL TREATMENT IN PROGRESS, BAYER
  5. METRONIDAZOLE [Concomitant]
     Active Substance: METRONIDAZOLE
     Indication: Sepsis
     Dosage: UNIT DOSE :  500 MG, FREQUENCY TIME :1 DAY, DURATION : 2 DAYS
     Route: 042
     Dates: start: 20220212, end: 20220214
  6. PRAMIPEXOLE [Concomitant]
     Active Substance: PRAMIPEXOLE
     Dosage: USUAL TREATMENT ON 19.02.2022, BOEHRINGER INGELHEIM
     Dates: start: 20220219
  7. METOPROLOL SUCCINATE [Concomitant]
     Active Substance: METOPROLOL SUCCINATE
     Dosage: DURATION : 13 DAYS, ASTRAZENECA AG, INGREDIENT (METOPROLOL SUCCINATE): 200MG;
     Dates: start: 20220215, end: 20220228
  8. TORSEMIDE [Concomitant]
     Active Substance: TORSEMIDE
     Dosage: ONGOING
     Dates: start: 20220215
  9. ENALAPRIL [Concomitant]
     Active Substance: ENALAPRIL
     Dosage: ONGOING
     Dates: start: 20220218
  10. ALDACTONE [Concomitant]
     Active Substance: SPIRONOLACTONE
     Dates: start: 20220218, end: 20220219
  11. PREGABALIN [Concomitant]
     Active Substance: PREGABALIN
     Dosage: USUAL TREATMENT TO 19.02.2022
     Dates: end: 20220219
  12. JARDIANCE [Concomitant]
     Active Substance: EMPAGLIFLOZIN
     Dosage: BOEHRINGER INGELHEIM
     Dates: start: 20220218, end: 20220219
  13. RIVOTRIL [Concomitant]
     Active Substance: CLONAZEPAM
     Dosage: USUAL TREATMENT ONGOING, ROCHE PHARMA, INGREDIENT (CLONAZEPAM): 0.5MG;
  14. TRAMADOL [Concomitant]
     Active Substance: TRAMADOL
     Dosage: TRAMAL SOL ORAL USUAL TREATMENT ON 01.03.2022, GRUENENTHAL CHEMIE
     Route: 048
     Dates: end: 20220301
  15. DAFALGAN [Concomitant]
     Active Substance: ACETAMINOPHEN
     Dosage: DAFALGAN PO USUAL TREATMENT ON 01.03.2022
     Route: 048
     Dates: end: 20220301
  16. GLYCOPYRRONIUM\INDACATEROL [Concomitant]
     Active Substance: GLYCOPYRRONIUM\INDACATEROL
     Dosage: USUAL TREATMENT ON 01.03.2022, NOVARTIS
     Dates: end: 20220301
  17. CALCIUM\CHOLECALCIFEROL [Concomitant]
     Active Substance: CALCIUM\CHOLECALCIFEROL
     Dosage: CALCIMAGON D3 USUAL TREATMENT AS OF 01.03.2022, NYCOMED PHARMA
     Dates: end: 20220301
  18. OESTRO-GYNAEDRON M [Concomitant]
     Route: 061
     Dates: start: 20220212, end: 20220301

REACTIONS (2)
  - Rash erythematous [Not Recovered/Not Resolved]
  - Rash maculo-papular [Not Recovered/Not Resolved]

NARRATIVE: CASE EVENT DATE: 20220228
